FAERS Safety Report 12326163 (Version 3)
Quarter: 2016Q2

REPORT INFORMATION
  Report Type: Spontaneous
  Country: JP (occurrence: JP)
  Receive Date: 20160503
  Receipt Date: 20160624
  Transmission Date: 20160815
  Serious: Yes (Hospitalization, Other)
  Sender: FDA-Public Use
  Company Number: JP-009507513-1604JPN016594

PATIENT
  Age: 44 Year
  Sex: Male
  Weight: 99 kg

DRUGS (5)
  1. SEVOFLURANE. [Suspect]
     Active Substance: SEVOFLURANE
     Indication: SURGERY
     Dosage: DAILY DOSE UNKNOWN, 2%-1%
     Route: 055
     Dates: start: 20160421, end: 20160421
  2. ULTIVA [Suspect]
     Active Substance: REMIFENTANIL HYDROCHLORIDE
     Indication: SURGERY
     Dosage: 0.5MG/H TAPERED TO 0.1 MG/H, DAILY DOSE UNKNOWN
     Route: 042
     Dates: start: 20160421, end: 20160421
  3. FENTANYL. [Suspect]
     Active Substance: FENTANYL
     Indication: SURGERY
     Dosage: 150 MICROGRAM, QD,DIVIDED DOSE FREQUENCY UNKNOWN
     Route: 042
     Dates: start: 20160421
  4. ESLAX INTRAVENOUS 50MG/5.0ML [Suspect]
     Active Substance: ROCURONIUM BROMIDE
     Indication: NEUROMUSCULAR BLOCKING THERAPY
     Dosage: 95 MG, QD, 15 MG/H
     Route: 042
     Dates: start: 20160421, end: 20160421
  5. DORMICUM (MIDAZOLAM) [Suspect]
     Active Substance: MIDAZOLAM HYDROCHLORIDE
     Indication: SURGERY
     Dosage: 5 MG, DIVIDED DOSE FREQUENCY UNKNOWN
     Route: 042
     Dates: start: 20160421, end: 20160421

REACTIONS (1)
  - Hyperkalaemia [Recovered/Resolved]

NARRATIVE: CASE EVENT DATE: 20160421
